FAERS Safety Report 22676882 (Version 2)
Quarter: 2023Q4

REPORT INFORMATION
  Report Type: Report from Study
  Country: DE (occurrence: DE)
  Receive Date: 20230706
  Receipt Date: 20231218
  Transmission Date: 20240110
  Serious: Yes (Other)
  Sender: FDA-Public Use
  Company Number: DE-PFIZER INC-202300239452

PATIENT
  Age: 66 Year
  Sex: Male

DRUGS (7)
  1. IDARUBICIN HYDROCHLORIDE [Suspect]
     Active Substance: IDARUBICIN HYDROCHLORIDE
     Indication: Oesophageal adenocarcinoma
     Dosage: 10 MG, CYCLIC
     Route: 048
     Dates: start: 202203, end: 202205
  2. PREDNISOLONE [Suspect]
     Active Substance: PREDNISOLONE
     Indication: Oesophageal adenocarcinoma stage IV
     Dosage: 100 MG, CYCLIC
     Route: 048
     Dates: start: 202203, end: 202205
  3. TROFOSFAMIDE [Suspect]
     Active Substance: TROFOSFAMIDE
     Indication: Oesophageal adenocarcinoma stage IV
     Dosage: 150 MG (50 MG 1-1-1), CYCLIC
     Route: 048
     Dates: start: 202203, end: 202205
  4. ETOPOSIDE [Suspect]
     Active Substance: ETOPOSIDE
     Indication: Oesophageal adenocarcinoma stage IV
     Dosage: 50 MG, 1X/DAY 2 CYCLES
     Route: 048
     Dates: start: 202203, end: 202205
  5. PROCARBAZINE [Suspect]
     Active Substance: PROCARBAZINE
     Indication: Oesophageal adenocarcinoma stage IV
     Dosage: 100 MG, CYCLIC
     Route: 048
     Dates: start: 202203, end: 202205
  6. SULFAMETHOXAZOLE AND TRIMETHOPRIM [Concomitant]
     Active Substance: SULFAMETHOXAZOLE\TRIMETHOPRIM
  7. ACYCLOVIR [Concomitant]
     Active Substance: ACYCLOVIR

REACTIONS (3)
  - Transient ischaemic attack [Unknown]
  - Neurotoxicity [Unknown]
  - Aphasia [Unknown]
